FAERS Safety Report 5660215-1 (Version None)
Quarter: 2008Q1

REPORT INFORMATION
  Report Type: 
  Country: None (occurrence: None)
  Receive Date: 20080212
  Receipt Date: 20071211
  Transmission Date: 20080703
  Serious: Yes (Other)
  Sender: FDA-Public Use
  Company Number: MC200700734

PATIENT
  Age: 81 Year
  Sex: Female
  Weight: 56.7 kg

DRUGS (2)
  1. ANGIOMAX [Suspect]
     Indication: PERCUTANEOUS CORONARY INTERVENTION
     Dosage: 8 ML, SINGLE, IV BOLUS; 19 ML, HR, INTRAVENOUS
     Route: 040
     Dates: start: 20071211, end: 20071211
  2. ANGIOMAX [Suspect]
     Indication: PERCUTANEOUS CORONARY INTERVENTION
     Dosage: 8 ML, SINGLE, IV BOLUS; 19 ML, HR, INTRAVENOUS
     Route: 040
     Dates: start: 20071211

REACTIONS (1)
  - CORONARY ARTERY THROMBOSIS [None]
